FAERS Safety Report 12720788 (Version 1)
Quarter: 2016Q3

REPORT INFORMATION
  Report Type: Spontaneous
  Country: IE (occurrence: IE)
  Receive Date: 20160907
  Receipt Date: 20160907
  Transmission Date: 20161109
  Serious: Yes (Other)
  Sender: FDA-Public Use
  Company Number: IE-TEVA-687893ACC

PATIENT
  Age: 65 Year
  Sex: Male

DRUGS (7)
  1. ASPIRIN (GENERIC) [Concomitant]
     Active Substance: ASPIRIN
  2. ARAVA [Concomitant]
     Active Substance: LEFLUNOMIDE
  3. AMLODIPINE [Concomitant]
     Active Substance: AMLODIPINE BESYLATE
     Indication: HYPERTENSION
  4. ENBREL [Concomitant]
     Active Substance: ETANERCEPT
     Indication: RHEUMATOID ARTHRITIS
  5. PLAQUENIL [Concomitant]
     Active Substance: HYDROXYCHLOROQUINE SULFATE
     Indication: RHEUMATOID ARTHRITIS
  6. LOSEC [Concomitant]
     Active Substance: OMEPRAZOLE
  7. DOXYCYCLINE TEVA 100MG HARD CAPSULES [Suspect]
     Active Substance: DOXYCYCLINE
     Indication: LOWER RESPIRATORY TRACT INFECTION
     Dosage: 200 MILLIGRAM DAILY;

REACTIONS (2)
  - Contusion [Recovering/Resolving]
  - Pruritus [Recovering/Resolving]
